FAERS Safety Report 10192672 (Version 2)
Quarter: 2014Q2

REPORT INFORMATION
  Report Type: Spontaneous
  Country: CH (occurrence: CH)
  Receive Date: 20140523
  Receipt Date: 20140523
  Transmission Date: 20141212
  Serious: Yes (Other)
  Sender: FDA-Public Use
  Company Number: CH-ASTRAZENECA-2013SE74854

PATIENT
  Age: 33 Year
  Sex: Female

DRUGS (6)
  1. SEROQUEL [Suspect]
     Indication: SCHIZOAFFECTIVE DISORDER
     Dosage: 650 MG/DAY + 150 MG/DAY IN RESERVE
     Route: 048
     Dates: start: 2013, end: 20130904
  2. SEROQUEL [Suspect]
     Indication: SCHIZOAFFECTIVE DISORDER
     Dosage: 650 MG/DAY + 150 MG/DAY IN RESERVE
     Route: 048
     Dates: start: 2013, end: 20130904
  3. SEROQUEL [Suspect]
     Indication: SCHIZOAFFECTIVE DISORDER
     Dosage: 800 MG/DAY + 200 MG/DAY
     Route: 048
     Dates: start: 20130905
  4. SEROQUEL [Suspect]
     Indication: SCHIZOAFFECTIVE DISORDER
     Dosage: 800 MG/DAY + 200 MG/DAY
     Route: 048
     Dates: start: 20130905
  5. SEROQUEL [Suspect]
     Indication: SCHIZOAFFECTIVE DISORDER
     Dosage: 1000 MG/DAY + 200 MG/ AT NIGHT
     Route: 048
  6. CLOTIAPINE [Concomitant]

REACTIONS (2)
  - Exposure during pregnancy [Recovered/Resolved]
  - Condition aggravated [Unknown]
